FAERS Safety Report 19094319 (Version 2)
Quarter: 2021Q4

REPORT INFORMATION
  Report Type: Spontaneous
  Country: US (occurrence: US)
  Receive Date: 20210406
  Receipt Date: 20211006
  Transmission Date: 20220303
  Serious: Yes (Other)
  Sender: FDA-Public Use
  Company Number: US-SUN PHARMACEUTICAL INDUSTRIES LTD-2021R1-289525

PATIENT
  Sex: Female

DRUGS (2)
  1. AMANTADINE. [Suspect]
     Active Substance: AMANTADINE HYDROCHLORIDE
     Indication: Neuroleptic malignant syndrome
     Dosage: UNK
     Route: 065
  2. CARBIDOPA AND LEVODOPA [Suspect]
     Active Substance: CARBIDOPA\LEVODOPA
     Indication: Neuroleptic malignant syndrome
     Dosage: UNK
     Route: 065

REACTIONS (1)
  - Drug ineffective [Unknown]
